FAERS Safety Report 9408396 (Version 1)
Quarter: 2013Q3

REPORT INFORMATION
  Report Type: Spontaneous
  Country: GB (occurrence: GB)
  Receive Date: 20130718
  Receipt Date: 20130718
  Transmission Date: 20140515
  Serious: Yes (Hospitalization, Disabling)
  Sender: FDA-Public Use
  Company Number: GB-MERCK-2011SP003362

PATIENT
  Age: 59 Year
  Sex: Male

DRUGS (3)
  1. DEXAMETHASONE TABLETS BP 2.0MG [Suspect]
     Indication: PLASMA CELL MYELOMA
     Dosage: 20 MG, ON THE DAY OF AND DAY AFTER EACH BORTEZOMIB INFUSION
     Route: 048
     Dates: start: 2006
  2. VELCADE [Suspect]
     Indication: PLASMA CELL MYELOMA
     Dosage: 1.3 MG/M2, UNK
     Route: 042
     Dates: start: 2006
  3. VELCADE [Suspect]
     Dosage: 1 MG/M2, UNK
     Route: 042

REACTIONS (1)
  - Chronic inflammatory demyelinating polyradiculoneuropathy [Recovering/Resolving]
